FAERS Safety Report 5671650-X (Version None)
Quarter: 2008Q1

REPORT INFORMATION
  Report Type: 
  Country: None (occurrence: None)
  Receive Date: 20080227
  Receipt Date: 20070406
  Transmission Date: 20080703
  Serious: Yes (Other)
  Sender: FDA-Public Use
  Company Number: CHPA2006US12605

PATIENT
  Age: 65 Year
  Sex: Female
  Weight: 89.8 kg

DRUGS (5)
  1. TRANSDERM SCOP [Suspect]
     Indication: PROPHYLAXIS AGAINST MOTION SICKNESS
     Dosage: 1.5 MG, Q7SH, TRANSDERMAL 0.75 MG, Q72H, TRANSDERMAL
     Route: 062
     Dates: start: 20061011
  2. TRANSDERM SCOP [Suspect]
     Indication: PROPHYLAXIS AGAINST MOTION SICKNESS
     Dosage: 1.5 MG, Q7SH, TRANSDERMAL 0.75 MG, Q72H, TRANSDERMAL
     Route: 062
     Dates: start: 20061204
  3. SYNTHROID [Concomitant]
  4. AMBIEN [Concomitant]
  5. COMPAZINE [Concomitant]

REACTIONS (21)
  - BLISTER [None]
  - CONSTIPATION [None]
  - DISORIENTATION [None]
  - DIZZINESS [None]
  - DRUG INEFFECTIVE [None]
  - DRY EYE [None]
  - DRY MOUTH [None]
  - DRY THROAT [None]
  - ERYTHEMA [None]
  - HEPATIC ENZYME INCREASED [None]
  - INCORRECT DOSE ADMINISTERED [None]
  - MALAISE [None]
  - MENTAL IMPAIRMENT [None]
  - MOTION SICKNESS [None]
  - NASAL DRYNESS [None]
  - NAUSEA [None]
  - PRURITUS [None]
  - RASH PAPULAR [None]
  - URTICARIA [None]
  - VERTIGO [None]
  - VOMITING [None]
